FAERS Safety Report 4355947-1 (Version None)
Quarter: 2004Q2

REPORT INFORMATION
  Report Type: 
  Country: None (occurrence: None)
  Receive Date: 20040507
  Receipt Date: 20040507
  Transmission Date: 20050107
  Serious: Yes (Death, Hospitalization)
  Sender: FDA-Public Use
  Company Number: None

PATIENT
  Sex: Female
  Weight: 64.4 kg

DRUGS (3)
  1. CISPLATIN [Suspect]
     Indication: BREAST CANCER METASTATIC
     Dosage: 42 MG IV DAY 1-4
     Route: 042
     Dates: start: 20020312, end: 20020315
  2. GEMCITABINE [Suspect]
     Dosage: 626 MG D2 AND 8
     Dates: start: 20020313, end: 20020319
  3. NEUPOGEN [Concomitant]

REACTIONS (2)
  - CARDIO-RESPIRATORY ARREST [None]
  - PULMONARY EMBOLISM [None]
